FAERS Safety Report 4526816-9 (Version None)
Quarter: 2004Q4

REPORT INFORMATION
  Report Type: 
  Country: None (occurrence: None)
  Receive Date: 20041213
  Receipt Date: 20041130
  Transmission Date: 20050328
  Serious: Yes (Other)
  Sender: FDA-Public Use
  Company Number: 2004040838

PATIENT
  Age: 62 Year
  Sex: Female
  Weight: 58.0604 kg

DRUGS (19)
  1. NEURONTIN [Suspect]
     Indication: PAIN
     Dosage: 600 MG (300 MG, 1 IN 1 D), ORAL
     Route: 048
  2. LIPITOR [Suspect]
     Indication: BLOOD CHOLESTEROL INCREASED
     Dosage: ORAL
     Route: 048
     Dates: end: 20040101
  3. LISINOPRIL [Suspect]
     Indication: HYPERTENSION
     Dates: start: 20040101
  4. ROSUVASTATIN (ROSUVASTATIN) [Suspect]
     Indication: BLOOD CHOLESTEROL INCREASED
     Dates: end: 20040101
  5. SIMVASTATIN [Suspect]
     Indication: BLOOD CHOLESTEROL INCREASED
     Dosage: 10 MG (10 MG, 1 IN 1 D)
  6. PYRIDOXINE HCL [Suspect]
     Indication: ILL-DEFINED DISORDER
  7. EZETIMIBE (EZETIMIBE) [Concomitant]
  8. ALL OTHER THERAPEUTIC PRODUCTS (ALL OTHER THERAPEUTIC PRODUCTS) [Concomitant]
  9. DOXEPIN (DOXEPIN) [Concomitant]
  10. ESTROGENS (ESTROGENS) [Concomitant]
  11. FISH OIL (FISH OIL) [Concomitant]
  12. VITAMINS (VITAMINS) [Concomitant]
  13. MINERALS NOS (MINERALS NOS) [Concomitant]
  14. VICON FORTE (FOLIC ACID, MINERALS NOS, VITAMINS NOS) [Concomitant]
  15. RETINOL (RETINOL) [Concomitant]
  16. TOCOPHEROL CONCENTRATE CAP [Concomitant]
  17. POTASSIUM (POTASSIUM) [Suspect]
  18. CALCIUM CITRATE (CALCIUM CITRATE) [Concomitant]
  19. ASPIRIN [Concomitant]

REACTIONS (5)
  - BLOOD CHOLESTEROL INCREASED [None]
  - FLATULENCE [None]
  - MYOCARDIAL INFARCTION [None]
  - PARAESTHESIA [None]
  - TINNITUS [None]
